FAERS Safety Report 19680285 (Version 1)
Quarter: 2021Q3

REPORT INFORMATION
  Report Type: Spontaneous
  Country: US (occurrence: US)
  Receive Date: 20210810
  Receipt Date: 20210810
  Transmission Date: 20211014
  Serious: Yes (Hospitalization)
  Sender: FDA-Public Use
  Company Number: None

PATIENT
  Sex: Male

DRUGS (8)
  1. BYNFEZIA PEN [Suspect]
     Active Substance: OCTREOTIDE ACETATE
     Indication: ACROMEGALY
     Dosage: ?          OTHER FREQUENCY:50MCG AM/100MCG PM;?
     Route: 058
     Dates: start: 20210212
  2. OCTREOTIDE. [Suspect]
     Active Substance: OCTREOTIDE
     Indication: ACROMEGALY
     Route: 058
     Dates: start: 20180125
  3. LEVOTHYROXIN [Concomitant]
     Active Substance: LEVOTHYROXINE
  4. BYNFEZIA PEN [Suspect]
     Active Substance: OCTREOTIDE ACETATE
     Indication: GIGANTISM
     Dosage: ?          OTHER FREQUENCY:50MCG AM/100MCG PM;?
     Route: 058
     Dates: start: 20210212
  5. LOSARTAN. [Concomitant]
     Active Substance: LOSARTAN
  6. ELIQUIS [Concomitant]
     Active Substance: APIXABAN
  7. OCTREOTIDE. [Suspect]
     Active Substance: OCTREOTIDE
     Indication: GIGANTISM
     Route: 058
     Dates: start: 20180125
  8. ROSUVASTATIN. [Concomitant]
     Active Substance: ROSUVASTATIN

REACTIONS (2)
  - Hospitalisation [None]
  - Therapy interrupted [None]
